FAERS Safety Report 6511509-9 (Version None)
Quarter: 2009Q4

REPORT INFORMATION
  Report Type: 
  Country: None (occurrence: None)
  Receive Date: 20091222
  Receipt Date: 20090415
  Transmission Date: 20100525
  Serious: No
  Sender: FDA-Public Use
  Company Number: US-ASTRAZENECA-2009UW09516

PATIENT
  Age: 45 Year
  Sex: Male

DRUGS (7)
  1. CRESTOR [Suspect]
     Indication: BLOOD CHOLESTEROL
     Route: 048
     Dates: start: 20090215
  2. ABILIFY [Concomitant]
  3. ROBINUL [Concomitant]
  4. LISINOPRIL [Concomitant]
  5. EFFEXOR [Concomitant]
  6. PROPECIA [Concomitant]
  7. LORAZEPAM [Concomitant]

REACTIONS (1)
  - WEIGHT INCREASED [None]
